FAERS Safety Report 5161793-1 (Version None)
Quarter: 2006Q4

REPORT INFORMATION
  Report Type: 
  Country: None (occurrence: None)
  Receive Date: 20061130
  Receipt Date: 20061108
  Transmission Date: 20070319
  Serious: Yes (Hospitalization)
  Sender: FDA-Public Use
  Company Number: JP-MERCK-0611USA03720

PATIENT
  Age: 44 Year
  Sex: Male
  Weight: 63 kg

DRUGS (13)
  1. PRIMAXIN [Suspect]
     Indication: PNEUMONIA
     Route: 065
     Dates: start: 20060623, end: 20060625
  2. PRULIFLOXACIN [Suspect]
     Route: 065
     Dates: start: 20030610
  3. CEFPIROME SULFATE [Suspect]
     Indication: PNEUMONIA
     Route: 042
     Dates: start: 20030616, end: 20030619
  4. MINOCYCLINE HCL [Suspect]
     Indication: PNEUMONIA
     Route: 042
     Dates: start: 20030616, end: 20030619
  5. MINOCYCLINE HCL [Suspect]
     Route: 065
     Dates: start: 20030626, end: 20030701
  6. MINOCYCLINE HCL [Suspect]
     Route: 065
     Dates: start: 20030702, end: 20030703
  7. ERYTHROMYCIN [Suspect]
     Indication: PNEUMONIA
     Route: 048
     Dates: start: 20030620, end: 20030622
  8. ERYTHROMYCIN [Suspect]
     Route: 048
     Dates: start: 20030704, end: 20030708
  9. PAZUFLOXACIN [Suspect]
     Indication: PNEUMONIA
     Route: 042
     Dates: start: 20030626, end: 20030701
  10. CIPROFLOXACIN [Suspect]
     Indication: PNEUMONIA
     Route: 065
     Dates: start: 20030702, end: 20030703
  11. MEROPENEM [Suspect]
     Indication: PNEUMONIA
     Route: 042
     Dates: start: 20030704, end: 20030708
  12. RIFAMPIN [Suspect]
     Indication: PNEUMONIA
     Route: 048
     Dates: start: 20030704, end: 20030708
  13. METHYLPREDNISOLONE SODIUM SUCCINATE [Concomitant]
     Indication: PNEUMONIA
     Route: 065
     Dates: start: 20030704

REACTIONS (20)
  - BLOOD ALKALINE PHOSPHATASE INCREASED [None]
  - CANDIDIASIS [None]
  - CHLAMYDIA SEROLOGY POSITIVE [None]
  - CONDITION AGGRAVATED [None]
  - CULTURE POSITIVE [None]
  - DRUG HYPERSENSITIVITY [None]
  - DRUG INEFFECTIVE [None]
  - EOSINOPHILIC PNEUMONIA [None]
  - ESCHERICHIA INFECTION [None]
  - GAMMA-GLUTAMYLTRANSFERASE INCREASED [None]
  - GRAM STAIN POSITIVE [None]
  - HYPOALBUMINAEMIA [None]
  - HYPOPROTEINAEMIA [None]
  - HYPOXIA [None]
  - INFECTION MASKED [None]
  - LUNG CONSOLIDATION [None]
  - PNEUMONIA [None]
  - RHEUMATOID FACTOR INCREASED [None]
  - SELF-MEDICATION [None]
  - STAPHYLOCOCCAL INFECTION [None]
